FAERS Safety Report 4981847-X (Version None)
Quarter: 2006Q2

REPORT INFORMATION
  Report Type: 
  Country: None (occurrence: None)
  Receive Date: 20060421
  Receipt Date: 20060421
  Transmission Date: 20061013
  Serious: Yes (Hospitalization, Other)
  Sender: FDA-Public Use
  Company Number: None

PATIENT
  Sex: Female
  Weight: 95.4 kg

DRUGS (6)
  1. CYCLOPHOSPHAMIDE [Suspect]
     Indication: ACUTE LYMPHOCYTIC LEUKAEMIA
     Dosage: 2532 MG
     Dates: start: 20060320
  2. DAUNORUBICIN [Suspect]
     Dosage: 504 MG
     Dates: start: 20060322
  3. DEXAMETHASONE [Suspect]
     Dosage: 77 MG
     Dates: start: 20060326
  4. G-CSF (FILGRASTIM, AMGEN) [Suspect]
     Dosage: 12960 MG
     Dates: start: 20060418
  5. ELSPAR [Suspect]
     Dosage: 75960 MG
     Dates: start: 20060410
  6. VINCRISTINE SULFATE [Suspect]
     Dosage: 8 MG
     Dates: start: 20060410

REACTIONS (6)
  - ASTHENIA [None]
  - BACTERAEMIA [None]
  - CHILLS [None]
  - DEHYDRATION [None]
  - NAUSEA [None]
  - VOMITING [None]
